FAERS Safety Report 24636407 (Version 1)
Quarter: 2024Q4

REPORT INFORMATION
  Report Type: Spontaneous
  Country: US (occurrence: US)
  Receive Date: 20241119
  Receipt Date: 20241119
  Transmission Date: 20250114
  Serious: No
  Sender: AMGEN
  Company Number: US-AMGEN-USASP2024226100

PATIENT

DRUGS (4)
  1. PREDNISONE [Suspect]
     Active Substance: PREDNISONE
     Indication: Hormone-dependent prostate cancer
     Dosage: UNK
     Route: 065
  2. LEUPROLIDE [Concomitant]
     Active Substance: LEUPROLIDE
     Indication: Hormone-dependent prostate cancer
     Dosage: UNK
     Route: 065
  3. ABIRATERONE ACETATE [Concomitant]
     Active Substance: ABIRATERONE ACETATE
     Indication: Hormone-dependent prostate cancer
     Dosage: UNK
     Route: 065
  4. APALUTAMIDE [Concomitant]
     Active Substance: APALUTAMIDE
     Indication: Hormone-dependent prostate cancer
     Dosage: UNK

REACTIONS (1)
  - Toxicity to various agents [Unknown]
